FAERS Safety Report 22343927 (Version 2)
Quarter: 2023Q2

REPORT INFORMATION
  Report Type: Report from Study
  Country: CN (occurrence: CN)
  Receive Date: 20230519
  Receipt Date: 20230526
  Transmission Date: 20230721
  Serious: Yes (Other)
  Sender: FDA-Public Use
  Company Number: CN-JNJFOC-20230534816

PATIENT
  Age: 51 Year
  Sex: Female

DRUGS (3)
  1. REMICADE [Suspect]
     Active Substance: INFLIXIMAB
     Indication: Rheumatoid arthritis
     Dosage: AT WEEKS 0, 2, 6, 14, 22, AND 30 (RECEIVED 4 DOSES IN TOTAL)
     Route: 041
  2. METHOTREXATE [Concomitant]
     Active Substance: METHOTREXATE
     Indication: Rheumatoid arthritis
     Dosage: 7.5 TO 15 MG
     Route: 048
  3. ENALAPRIL MALEATE [Concomitant]
     Active Substance: ENALAPRIL MALEATE
     Indication: Hypertension
     Route: 065

REACTIONS (2)
  - Acute myelomonocytic leukaemia [Unknown]
  - Off label use [Unknown]
